FAERS Safety Report 13493025 (Version 1)
Quarter: 2017Q2

REPORT INFORMATION
  Report Type: Spontaneous
  Country: US (occurrence: US)
  Receive Date: 20170427
  Receipt Date: 20170427
  Transmission Date: 20170830
  Serious: No
  Sender: FDA-Public Use
  Company Number: US-ROCHE-1190691

PATIENT
  Age: 62 Year
  Sex: Male

DRUGS (2)
  1. ERIVEDGE [Suspect]
     Active Substance: VISMODEGIB
     Indication: BASAL CELL CARCINOMA
     Route: 065
  2. ERIVEDGE [Suspect]
     Active Substance: VISMODEGIB
     Route: 065

REACTIONS (5)
  - Muscle spasms [Recovered/Resolved]
  - Myalgia [Recovered/Resolved]
  - Palpitations [Unknown]
  - Madarosis [Unknown]
  - Arrhythmia [Unknown]
